FAERS Safety Report 9437319 (Version 1)
Quarter: 2013Q3

REPORT INFORMATION
  Report Type: Spontaneous
  Country: CH (occurrence: CH)
  Receive Date: 20130802
  Receipt Date: 20130802
  Transmission Date: 20140515
  Serious: Yes (Death, Hospitalization, Other)
  Sender: FDA-Public Use
  Company Number: CH-BAYER-2013-091155

PATIENT
  Age: 75 Year
  Sex: Female

DRUGS (5)
  1. CIPROFLOXACIN [Suspect]
  2. DOXYCYCLINE [Suspect]
     Indication: INFECTION
  3. DOXYCYCLINE [Suspect]
     Indication: EVIDENCE BASED TREATMENT
  4. AMOXICILLINE + CLAVULANIC ACID [Suspect]
     Indication: ENDOCARDITIS BACTERIAL
  5. GENTAMICIN [Suspect]
     Indication: ENDOCARDITIS BACTERIAL

REACTIONS (6)
  - Endocarditis bacterial [Fatal]
  - Embolic cerebral infarction [Not Recovered/Not Resolved]
  - Renal embolism [Not Recovered/Not Resolved]
  - Renal infarct [Not Recovered/Not Resolved]
  - Septic embolus [Not Recovered/Not Resolved]
  - Drug ineffective [None]
